FAERS Safety Report 9137901 (Version 2)
Quarter: 2014Q1

REPORT INFORMATION
  Report Type: Spontaneous
  Country: US (occurrence: US)
  Receive Date: 20130304
  Receipt Date: 20140117
  Transmission Date: 20141002
  Serious: Yes (Hospitalization, Other)
  Sender: FDA-Public Use
  Company Number: US-BAYER-2013-026375

PATIENT
  Age: 30 Year
  Sex: Female

DRUGS (11)
  1. YAZ [Suspect]
     Dosage: UNK
  2. YASMIN [Suspect]
     Dosage: UNK
  3. OCELLA [Suspect]
     Dosage: UNK
  4. AMBIEN [Concomitant]
     Dosage: UNK
  5. CYMBALTA [Concomitant]
     Dosage: 60 MG, UNK
  6. ZOLPIDEM [Concomitant]
     Dosage: 10 MG, UNK
  7. ALPRAZOLAM [Concomitant]
     Dosage: 0.5 MG, UNK
  8. ZYRTEC [Concomitant]
     Dosage: UNK
  9. PERCOCET [Concomitant]
     Dosage: UNK
  10. XANAX [Concomitant]
     Dosage: UNK
  11. PHENTERMINE [Concomitant]
     Dosage: UNK

REACTIONS (7)
  - Cholecystectomy [None]
  - Cholecystitis chronic [None]
  - Myocardial infarction [None]
  - Injury [None]
  - Pain [None]
  - Emotional distress [None]
  - Pain [None]
